FAERS Safety Report 21147307 (Version 2)
Quarter: 2022Q3

REPORT INFORMATION
  Report Type: Spontaneous
  Country: US (occurrence: US)
  Receive Date: 20220729
  Receipt Date: 20220808
  Transmission Date: 20221027
  Serious: No
  Sender: FDA-Public Use
  Company Number: US-LUPIN PHARMACEUTICALS INC.-2022-09703

PATIENT
  Sex: Female

DRUGS (1)
  1. ALBUTEROL SULFATE [Suspect]
     Active Substance: ALBUTEROL SULFATE
     Indication: Asthma
     Dosage: UNK, 2-4 PUFF
     Dates: start: 2022

REACTIONS (4)
  - Product lot number issue [Unknown]
  - Product expiration date issue [Unknown]
  - Wrong technique in product usage process [Unknown]
  - No adverse event [Unknown]
